FAERS Safety Report 5501372-7 (Version None)
Quarter: 2007Q4

REPORT INFORMATION
  Report Type: 
  Country: None (occurrence: None)
  Receive Date: 20071026
  Receipt Date: 20071002
  Transmission Date: 20080405
  Serious: Yes (Death, Life-Threatening, Other)
  Sender: FDA-Public Use
  Company Number: 2007US001924

PATIENT
  Age: 55 Year
  Sex: Male

DRUGS (18)
  1. AMBISOME [Suspect]
     Indication: SYSTEMIC CANDIDA
     Dosage: 200 MG, UID/QD, IV DRIP
     Route: 041
     Dates: start: 20070606, end: 20070629
  2. PROGRAF [Suspect]
     Indication: DRUG USE FOR UNKNOWN INDICATION
     Dosage: 0.6 MG, UID/QD, IV DRIP
     Route: 041
  3. MYCAMINE [Suspect]
     Indication: SYSTEMIC CANDIDA
     Dosage: 300 MG, UID/QD, IV DRIP
     Route: 041
     Dates: start: 20070510
  4. VANCOMYCIN HYDROCHLORIDE [Suspect]
     Indication: DRUG USE FOR UNKNOWN INDICATION
     Dosage: 1 G, UID/QD, IV DRIP
     Route: 041
     Dates: start: 20070615
  5. DENOSINE(GANCICLOVIR) [Suspect]
     Indication: DRUG USE FOR UNKNOWN INDICATION
     Dosage: 120 MG, UID/QD
     Dates: start: 20070508
  6. TARGOCID [Suspect]
     Indication: DRUG USE FOR UNKNOWN INDICATION
  7. BACTRAMIN(SULFAMETHOXAZOLE) [Suspect]
     Indication: DRUG USE FOR UNKNOWN INDICATION
     Dosage: IV DRIP
     Route: 041
     Dates: start: 20070606
  8. NEUPOGEN [Concomitant]
  9. PREDNISONE [Concomitant]
  10. FRAGMIN [Concomitant]
  11. OMEPRAZOLE [Concomitant]
  12. VFEND [Concomitant]
  13. ACYCLOVIR [Concomitant]
  14. MAXIPIME [Concomitant]
  15. VICCILLIN-S [Concomitant]
  16. CIPROFLAXACIN [Concomitant]
  17. MEROPEN (MEROPENEM) [Concomitant]
  18. ANTITHROMBIN III (ANTITHROMBIN III) [Concomitant]

REACTIONS (19)
  - ALANINE AMINOTRANSFERASE INCREASED [None]
  - ASPARTATE AMINOTRANSFERASE INCREASED [None]
  - BLOOD BILIRUBIN INCREASED [None]
  - BLOOD POTASSIUM DECREASED [None]
  - BLOOD URINE PRESENT [None]
  - CYTOMEGALOVIRUS INFECTION [None]
  - HAEMATOCRIT DECREASED [None]
  - HAEMODIALYSIS [None]
  - HAEMOGLOBIN DECREASED [None]
  - INTERSTITIAL LUNG DISEASE [None]
  - LIVER DISORDER [None]
  - PLATELET COUNT DECREASED [None]
  - RED BLOOD CELL COUNT DECREASED [None]
  - RENAL IMPAIRMENT [None]
  - RESPIRATORY FAILURE [None]
  - SEPSIS [None]
  - SHOCK [None]
  - SYSTEMIC CANDIDA [None]
  - WHITE BLOOD CELL COUNT DECREASED [None]
